FAERS Safety Report 13443651 (Version 1)
Quarter: 2017Q2

REPORT INFORMATION
  Report Type: Spontaneous
  Country: US (occurrence: US)
  Receive Date: 20170414
  Receipt Date: 20170414
  Transmission Date: 20170830
  Serious: No
  Sender: FDA-Public Use
  Company Number: US-ALLERGAN-1678512US

PATIENT
  Age: 57 Year
  Sex: Female

DRUGS (1)
  1. TIMOLOL UNK [Suspect]
     Active Substance: TIMOLOL
     Indication: PREOPERATIVE CARE
     Dosage: UNK
     Route: 047
     Dates: start: 201606, end: 201606

REACTIONS (1)
  - Heart rate decreased [Unknown]
